FAERS Safety Report 17272683 (Version 1)
Quarter: 2020Q1

REPORT INFORMATION
  Report Type: Spontaneous
  Country: US (occurrence: US)
  Receive Date: 20191223
  Receipt Date: 20191223
  Transmission Date: 20200409
  Serious: Yes (Life-Threatening)
  Sender: FDA-Public Use
  Company Number: None

PATIENT
  Age: 36 Year
  Sex: Female

DRUGS (9)
  1. TACROLIMUS OINTMENT [Concomitant]
     Active Substance: TACROLIMUS
  2. DROPPERETTE OPTHALMIC [Concomitant]
  3. CLOBETASOL PROPIONATE OINTMENT [Concomitant]
     Active Substance: CLOBETASOL PROPIONATE
  4. FERROUS SULFATE. [Concomitant]
     Active Substance: FERROUS SULFATE
  5. XOLAIR [Suspect]
     Active Substance: OMALIZUMAB
     Route: 058
  6. CETIRIZINE [Concomitant]
     Active Substance: CETIRIZINE HYDROCHLORIDE
  7. EPINEPHRINE. [Concomitant]
     Active Substance: EPINEPHRINE
  8. PROMETHAZINE HCI [Concomitant]
  9. POLYVINYL ALCOHOL/POVIDONE [Concomitant]

REACTIONS (1)
  - Injection related reaction [None]

NARRATIVE: CASE EVENT DATE: 20191216
